FAERS Safety Report 10133012 (Version 2)
Quarter: 2015Q1

REPORT INFORMATION
  Report Type: Other
  Country: None (occurrence: US)
  Receive Date: 20140428
  Receipt Date: 20150210
  Transmission Date: 20150720
  Serious: Yes (Hospitalization, Other)
  Sender: FDA-Public Use
  Company Number: US-GSKPPD-2014GSK031146

PATIENT
  Age: 73 Year
  Sex: Female

DRUGS (11)
  1. CLOPIDOGREL [Concomitant]
     Active Substance: CLOPIDOGREL BISULFATE
  2. CARVEDILOL. [Concomitant]
     Active Substance: CARVEDILOL
  3. AVANDIA [Suspect]
     Active Substance: ROSIGLITAZONE MALEATE
     Indication: DIABETES MELLITUS
     Dosage: DATES OF AVANDIA USE COULD NOT BE CONFIRMED IN RECORDS REVIEWED.
     Route: 048
  4. MILRINONE [Concomitant]
     Active Substance: MILRINONE
     Dates: start: 20091002, end: 20091002
  5. DIGOXIN. [Concomitant]
     Active Substance: DIGOXIN
     Dosage: EVERY OTHER DAY
  6. METOLAZONE. [Concomitant]
     Active Substance: METOLAZONE
     Dates: start: 200910
  7. WARFARIN [Concomitant]
     Active Substance: WARFARIN
     Dates: start: 200910
  8. ASPIRIN. [Concomitant]
     Active Substance: ASPIRIN
     Dates: start: 20090925
  9. BUMETANIDE. [Concomitant]
     Active Substance: BUMETANIDE
     Dates: start: 200910
  10. HYDRALAZINE [Concomitant]
     Active Substance: HYDRALAZINE HYDROCHLORIDE
     Dates: start: 200910
  11. ISOSORBIDE MONONITRATE. [Concomitant]
     Active Substance: ISOSORBIDE MONONITRATE

REACTIONS (2)
  - Acute myocardial infarction [Recovered/Resolved]
  - Cerebrovascular accident [Recovered/Resolved]

NARRATIVE: CASE EVENT DATE: 20090925
